FAERS Safety Report 9417493 (Version 2)
Quarter: 2013Q3

REPORT INFORMATION
  Report Type: Spontaneous
  Country: CA (occurrence: CA)
  Receive Date: 20130724
  Receipt Date: 20130806
  Transmission Date: 20140515
  Serious: Yes (Other)
  Sender: FDA-Public Use
  Company Number: CA-AMGEN-CANSP2013050079

PATIENT
  Age: 72 Year
  Sex: Female
  Weight: 79.1 kg

DRUGS (3)
  1. PROLIA [Suspect]
     Indication: OSTEOPOROSIS
     Dosage: UNK
     Route: 065
     Dates: start: 20121220
  2. SYNTHYROID [Concomitant]
     Dosage: 0.08 MG, UNK
     Route: 048
  3. ATENOLOL [Concomitant]
     Dosage: 25 MG, UNK
     Route: 048

REACTIONS (3)
  - Cellulitis [Recovered/Resolved]
  - Herpes zoster [Unknown]
  - Rash [Unknown]
